FAERS Safety Report 12759617 (Version 1)
Quarter: 2016Q3

REPORT INFORMATION
  Report Type: Spontaneous
  Country: US (occurrence: US)
  Receive Date: 20160919
  Receipt Date: 20160919
  Transmission Date: 20161109
  Serious: No
  Sender: FDA-Public Use
  Company Number: US-INCYTE CORPORATION-2016IN005721

PATIENT
  Sex: Female

DRUGS (1)
  1. JAKAFI [Suspect]
     Active Substance: RUXOLITINIB
     Dosage: TAKES 2 TABS BY MOUTH EVERY MORNING AND 1 TAB BY MOUTH EVERY EVENING FOR A TOTAL DOSE OF 15MG DAILY
     Dates: start: 20150115

REACTIONS (2)
  - Oesophageal spasm [Unknown]
  - Dysphagia [Unknown]
